FAERS Safety Report 6184162-4 (Version None)
Quarter: 2009Q2

REPORT INFORMATION
  Report Type: 
  Country: None (occurrence: None)
  Receive Date: 20090508
  Receipt Date: 20090430
  Transmission Date: 20091009
  Serious: Yes (Hospitalization)
  Sender: FDA-Public Use
  Company Number: TR-ABBOTT-09P-161-0570651-00

PATIENT
  Sex: Male
  Weight: 75 kg

DRUGS (2)
  1. HUMIRA [Suspect]
     Indication: ANKYLOSING SPONDYLITIS
     Route: 058
     Dates: start: 20080408
  2. ISOVIT [Concomitant]
     Indication: PROPHYLAXIS
     Route: 048

REACTIONS (2)
  - GENERALISED ERYTHEMA [None]
  - LIP SWELLING [None]
